FAERS Safety Report 5628858-9 (Version None)
Quarter: 2008Q1

REPORT INFORMATION
  Report Type: 
  Country: None (occurrence: None)
  Receive Date: 20080215
  Receipt Date: 20080206
  Transmission Date: 20080703
  Serious: Yes (Other)
  Sender: FDA-Public Use
  Company Number: GB-PFIZER INC-2008013043

PATIENT
  Age: 39 Year
  Sex: Male

DRUGS (1)
  1. CHANTIX [Suspect]
     Route: 048

REACTIONS (1)
  - MIGRAINE [None]
